FAERS Safety Report 16424598 (Version 1)
Quarter: 2019Q2

REPORT INFORMATION
  Report Type: Spontaneous
  Country: GB (occurrence: GB)
  Receive Date: 20190613
  Receipt Date: 20190613
  Transmission Date: 20190711
  Serious: Yes (Hospitalization, Other)
  Sender: FDA-Public Use
  Company Number: GB-MYLANLABS-2019M1054123

PATIENT
  Age: 87 Year
  Sex: Female

DRUGS (1)
  1. VERAPAMIL [Suspect]
     Active Substance: VERAPAMIL HYDROCHLORIDE
     Indication: HYPERTENSION
     Dosage: 120 MILLIGRAM
     Route: 048

REACTIONS (18)
  - Heart rate decreased [Recovered/Resolved]
  - Somnolence [Recovered/Resolved]
  - Condition aggravated [Unknown]
  - Shock [Recovered/Resolved]
  - General physical condition decreased [Recovered/Resolved]
  - Bradycardia [Recovered/Resolved]
  - Suicidal ideation [Unknown]
  - Loss of consciousness [Recovered/Resolved]
  - Stupor [Recovered/Resolved]
  - Respiration abnormal [Recovered/Resolved]
  - Suicide attempt [Unknown]
  - Hypotension [Recovered/Resolved]
  - Drug abuse [Unknown]
  - Medication error [Unknown]
  - Coma [Recovered/Resolved]
  - Heart rate abnormal [Recovered/Resolved]
  - Overdose [Unknown]
  - Intentional product misuse [Unknown]
